FAERS Safety Report 13149434 (Version 2)
Quarter: 2017Q1

REPORT INFORMATION
  Report Type: Report from Study
  Country: TH (occurrence: TH)
  Receive Date: 20170125
  Receipt Date: 20170303
  Transmission Date: 20170428
  Serious: Yes (Hospitalization, Other)
  Sender: FDA-Public Use
  Company Number: PHHY2017TH007003

PATIENT
  Age: 32 Year
  Sex: Female
  Weight: 40 kg

DRUGS (4)
  1. GLIVEC [Interacting]
     Active Substance: IMATINIB MESYLATE
     Dosage: 600 MG, QD
     Route: 048
  2. RIMSTAR [Interacting]
     Active Substance: ETHAMBUTOL\ISONIAZID\PYRAZINAMIDE\RIFAMYCIN
     Indication: LYMPH NODE TUBERCULOSIS
     Dosage: 3 DF, QD
     Route: 048
     Dates: start: 201612, end: 201702
  3. RIMSTAR [Interacting]
     Active Substance: ETHAMBUTOL\ISONIAZID\PYRAZINAMIDE\RIFAMYCIN
     Indication: PULMONARY TUBERCULOSIS
  4. GLIVEC [Suspect]
     Active Substance: IMATINIB MESYLATE
     Indication: CHRONIC MYELOID LEUKAEMIA
     Dosage: 400 MG, UNK
     Route: 048

REACTIONS (5)
  - Lymph node tuberculosis [Unknown]
  - Pulmonary tuberculosis [Unknown]
  - Drug level decreased [Unknown]
  - Pyrexia [Unknown]
  - Drug interaction [Unknown]

NARRATIVE: CASE EVENT DATE: 201612
